FAERS Safety Report 4886489-2 (Version None)
Quarter: 2006Q1

REPORT INFORMATION
  Report Type: 
  Country: None (occurrence: None)
  Receive Date: 20060120
  Receipt Date: 20060110
  Transmission Date: 20060701
  Serious: Yes (Other)
  Sender: FDA-Public Use
  Company Number: PHEH2006US00802

PATIENT
  Age: 45 Year
  Sex: Male

DRUGS (8)
  1. METOPROLOL [Concomitant]
  2. AMLODIPINE BESYLATE [Concomitant]
  3. HYDROCHLOROTHIAZIDE [Concomitant]
  4. ZOLOFT [Concomitant]
  5. TRAZODONE [Concomitant]
  6. SEROQUEL [Concomitant]
  7. MINOXIDIL [Concomitant]
  8. SANDOSTATIN LAR [Suspect]
     Indication: ACROMEGALY
     Dosage: 30 MG, QMO
     Dates: start: 20020101, end: 20060101

REACTIONS (4)
  - CEREBROVASCULAR ACCIDENT [None]
  - INTERNATIONAL NORMALISED RATIO INCREASED [None]
  - PROTHROMBIN TIME PROLONGED [None]
  - VENOUS THROMBOSIS [None]
